FAERS Safety Report 7755529-5 (Version None)
Quarter: 2011Q3

REPORT INFORMATION
  Report Type: 
  Country: None (occurrence: None)
  Receive Date: 20110916
  Receipt Date: 20110905
  Transmission Date: 20111222
  Serious: Yes (Hospitalization, Disabling, Other)
  Sender: FDA-Public Use
  Company Number: US-RANBAXY-2011RR-47538

PATIENT
  Sex: Female

DRUGS (4)
  1. PREDNISOLONE [Suspect]
     Indication: PRODUCT USED FOR UNKNOWN INDICATION
     Dosage: UNK
     Route: 065
  2. CIPROFLOXACIN [Suspect]
     Indication: PYELONEPHRITIS
     Dosage: UNK
     Route: 065
  3. LEVAQUIN [Suspect]
     Indication: SINUS CONGESTION
     Dosage: 750 MG, QD
     Route: 048
     Dates: start: 20081201
  4. LEVAQUIN [Suspect]
     Dosage: 750 MG, QD
     Route: 048
     Dates: start: 20090101

REACTIONS (19)
  - DEPRESSION [None]
  - VASOSPASM [None]
  - EYE PAIN [None]
  - MIGRAINE [None]
  - ANXIETY [None]
  - TINNITUS [None]
  - DRUG HYPERSENSITIVITY [None]
  - FACIAL PAIN [None]
  - MUSCULOSKELETAL PAIN [None]
  - EYE DISORDER [None]
  - PAIN [None]
  - PAIN IN JAW [None]
  - HYPERACUSIS [None]
  - HYPOTENSION [None]
  - CHEST PAIN [None]
  - PHOTOPHOBIA [None]
  - TENDON PAIN [None]
  - PARAESTHESIA [None]
  - ARTHRALGIA [None]
